FAERS Safety Report 16190101 (Version 6)
Quarter: 2022Q3

REPORT INFORMATION
  Report Type: Other
  Country: CA (occurrence: None)
  Receive Date: 20190412
  Receipt Date: 20220921
  Transmission Date: 20221027
  Serious: No
  Sender: FDA-Public Use
  Company Number: CA-ROCHE-2302650

PATIENT
  Age: 28 Year
  Sex: Female

DRUGS (2)
  1. OCREVUS [Suspect]
     Active Substance: OCRELIZUMAB
     Indication: Relapsing-remitting multiple sclerosis
     Dosage: 300 MG AT DAY 0 AND 14, THEN 600 MG EVERY 6 MONTH ONGOING: YES
     Route: 042
     Dates: start: 20180405
  2. BUCKLEYS DM [Concomitant]
     Active Substance: DEXTROMETHORPHAN HYDROBROMIDE
     Dosage: ONGOING: YES

REACTIONS (14)
  - Influenza [Not Recovered/Not Resolved]
  - Feeling of body temperature change [Not Recovered/Not Resolved]
  - Ear infection [Unknown]
  - White blood cell count increased [Unknown]
  - Neutrophil count increased [Unknown]
  - Pyrexia [Recovered/Resolved]
  - Tonsillar hypertrophy [Recovered/Resolved]
  - Gingival pain [Unknown]
  - Lip oedema [Recovered/Resolved]
  - Ulcer [Recovered/Resolved]
  - Viral infection [Recovering/Resolving]
  - COVID-19 [Unknown]
  - Tympanic membrane perforation [Unknown]
  - Tinnitus [Unknown]

NARRATIVE: CASE EVENT DATE: 20190401
